FAERS Safety Report 14343946 (Version 1)
Quarter: 2018Q1

REPORT INFORMATION
  Report Type: Report from Study
  Country: None (occurrence: CA)
  Receive Date: 20180102
  Receipt Date: 20180102
  Transmission Date: 20180509
  Serious: Yes (Death)
  Sender: FDA-Public Use
  Company Number: CA-ABBVIE-17P-028-2208423-00

PATIENT
  Age: 45 Year
  Sex: Female

DRUGS (2)
  1. XOZOMIB [Concomitant]
     Indication: PRODUCT USED FOR UNKNOWN INDICATION
  2. VENCLEXTA [Suspect]
     Active Substance: VENETOCLAX
     Indication: PLASMA CELL MYELOMA
     Route: 048
     Dates: start: 20171027

REACTIONS (1)
  - Death [Fatal]

NARRATIVE: CASE EVENT DATE: 201712
